FAERS Safety Report 4464635-2 (Version None)
Quarter: 2004Q4

REPORT INFORMATION
  Report Type: 
  Country: None (occurrence: None)
  Receive Date: 20041004
  Receipt Date: 20040921
  Transmission Date: 20050328
  Serious: Yes (Hospitalization)
  Sender: FDA-Public Use
  Company Number: FR-JNJFOC-20040903797

PATIENT
  Age: 60 Year
  Sex: Female

DRUGS (1)
  1. REMICADE [Suspect]
     Indication: RHEUMATOID ARTHRITIS
     Dosage: PATIENT WAS NOT TAKING REMICADE.
     Route: 042

REACTIONS (2)
  - PERICARDITIS CONSTRICTIVE [None]
  - PERICARDITIS TUBERCULOUS [None]
